FAERS Safety Report 8100198-8 (Version None)
Quarter: 2012Q1

REPORT INFORMATION
  Report Type: 
  Country: None (occurrence: None)
  Receive Date: 20120129
  Receipt Date: 20111121
  Transmission Date: 20120608
  Serious: No
  Sender: FDA-Public Use
  Company Number: US-ABBOTT-11P-163-0850594-00

PATIENT
  Sex: Male
  Weight: 91.708 kg

DRUGS (2)
  1. HUMIRA [Suspect]
     Indication: PSORIASIS
     Dates: start: 20110218
  2. TOPICAL OINTMENTS [Concomitant]
     Indication: PSORIASIS

REACTIONS (9)
  - BACK DISORDER [None]
  - HEPATIC ENZYME INCREASED [None]
  - PSORIASIS [None]
  - HEADACHE [None]
  - INJECTION SITE SWELLING [None]
  - INJECTION SITE PAIN [None]
  - NERVE COMPRESSION [None]
  - INJECTION SITE PRURITUS [None]
  - INJECTION SITE DISCOLOURATION [None]
